FAERS Safety Report 4345005-4 (Version None)
Quarter: 2004Q2

REPORT INFORMATION
  Report Type: 
  Country: None (occurrence: None)
  Receive Date: 20040423
  Receipt Date: 20040408
  Transmission Date: 20050107
  Serious: Yes (Life-Threatening, Hospitalization)
  Sender: FDA-Public Use
  Company Number: 200412920US

PATIENT
  Sex: Female

DRUGS (19)
  1. ARAVA [Suspect]
     Indication: JUVENILE ARTHRITIS
     Dates: start: 20010307, end: 20020331
  2. TYLENOL (CAPLET) [Concomitant]
     Dosage: DOSE: UNK
  3. METHOTREXATE [Concomitant]
  4. FOLIC ACID [Concomitant]
  5. PREDNISONE [Concomitant]
  6. CELEBREX [Concomitant]
     Dosage: DOSE: UNK
  7. CALCIUM [Concomitant]
     Dosage: DOSE: UNK
  8. PLAQUENIL [Concomitant]
  9. MIACALCIN [Concomitant]
     Dosage: DOSE: UNK
  10. ACIPHEX [Concomitant]
     Dosage: DOSE: UNK
  11. VOLTAREN [Concomitant]
     Dosage: DOSE: UNK
  12. LEVAQUIN [Concomitant]
     Dosage: DOSE: UNK
  13. RANITIDINE [Concomitant]
     Dosage: DOSE: UNK
  14. HYDROCHLOROTHIAZIDE [Concomitant]
     Dosage: DOSE: UNK
  15. METRONIDAZOLE [Concomitant]
     Dosage: DOSE: UNK
  16. EPOGEN [Concomitant]
     Dosage: DOSE: UNK
  17. LAMISIL [Concomitant]
     Dosage: DOSE: UNK
  18. HYDROCODONE [Concomitant]
     Dosage: DOSE: UNK
  19. CENTRUM [Concomitant]
     Dosage: DOSE: UNK

REACTIONS (16)
  - CHILLS [None]
  - DYSPNOEA [None]
  - FATIGUE [None]
  - HYPERHIDROSIS [None]
  - INFLUENZA LIKE ILLNESS [None]
  - LUNG CONSOLIDATION [None]
  - LUNG INFILTRATION [None]
  - NAUSEA [None]
  - PAIN [None]
  - PALPITATIONS [None]
  - PLEURAL EFFUSION [None]
  - RESPIRATORY DISORDER [None]
  - RESPIRATORY DISTRESS [None]
  - STAPHYLOCOCCAL INFECTION [None]
  - TACHYCARDIA [None]
  - VIRAL INFECTION [None]
